FAERS Safety Report 10012223 (Version 2)
Quarter: 2014Q2

REPORT INFORMATION
  Report Type: Spontaneous
  Country: US (occurrence: US)
  Receive Date: 20140312
  Receipt Date: 20140429
  Transmission Date: 20141212
  Serious: No
  Sender: FDA-Public Use
  Company Number: US-PFIZER INC-2014068561

PATIENT
  Sex: Female

DRUGS (2)
  1. NITROSTAT [Suspect]
     Indication: ANGINA PECTORIS
     Dosage: 0.4 MG, AS NEEDED
     Dates: start: 201311
  2. NITROSTAT [Suspect]
     Indication: OESOPHAGEAL SPASM

REACTIONS (1)
  - Drug ineffective for unapproved indication [Unknown]
